FAERS Safety Report 8133033-2 (Version None)
Quarter: 2012Q1

REPORT INFORMATION
  Report Type: 
  Country: None (occurrence: None)
  Receive Date: 20120213
  Receipt Date: 20120206
  Transmission Date: 20120608
  Serious: Yes (Other)
  Sender: FDA-Public Use
  Company Number: PHHY2012US011291

PATIENT

DRUGS (1)
  1. ALISKIREN [Suspect]
     Indication: HYPERTENSION

REACTIONS (2)
  - COLON ADENOMA [None]
  - RECTAL CANCER [None]
